FAERS Safety Report 19934587 (Version 5)
Quarter: 2023Q4

REPORT INFORMATION
  Report Type: Spontaneous
  Country: US (occurrence: US)
  Receive Date: 20211008
  Receipt Date: 20231115
  Transmission Date: 20240110
  Serious: Yes (Other)
  Sender: FDA-Public Use
  Company Number: US-PFIZER INC-2021402696

PATIENT
  Age: 72 Year
  Sex: Female
  Weight: 97.506 kg

DRUGS (1)
  1. XELJANZ XR [Suspect]
     Active Substance: TOFACITINIB CITRATE
     Indication: Rheumatoid arthritis
     Dosage: 11 MG, 1X/DAY

REACTIONS (15)
  - Pneumonia [Unknown]
  - Breast cancer [Unknown]
  - Breast cancer stage I [Unknown]
  - C-reactive protein increased [Unknown]
  - Hypertonic bladder [Unknown]
  - Cardiac disorder [Unknown]
  - Arthralgia [Unknown]
  - Sinusitis [Unknown]
  - Pyrexia [Unknown]
  - Chills [Unknown]
  - Gingival abscess [Unknown]
  - COVID-19 [Unknown]
  - Wound [Unknown]
  - Osteoarthritis [Unknown]
  - Joint stiffness [Unknown]
